FAERS Safety Report 20059357 (Version 1)
Quarter: 2021Q4

REPORT INFORMATION
  Report Type: Spontaneous
  Country: PT (occurrence: PT)
  Receive Date: 20211111
  Receipt Date: 20211111
  Transmission Date: 20220304
  Serious: Yes (Other)
  Sender: FDA-Public Use
  Company Number: PT-MYLANLABS-2021M1082596

PATIENT
  Sex: Female

DRUGS (9)
  1. CALCIUM CARBONATE [Suspect]
     Active Substance: CALCIUM CARBONATE
     Indication: Hypophosphataemic osteomalacia
     Dosage: UNK
     Route: 065
  2. CINACALCET HYDROCHLORIDE [Suspect]
     Active Substance: CINACALCET HYDROCHLORIDE
     Indication: Hypophosphataemic osteomalacia
     Dosage: 30 MILLIGRAM, QD
     Route: 065
  3. CINACALCET HYDROCHLORIDE [Suspect]
     Active Substance: CINACALCET HYDROCHLORIDE
     Dosage: 60 MILLIGRAM, QD
     Route: 065
  4. CINACALCET HYDROCHLORIDE [Suspect]
     Active Substance: CINACALCET HYDROCHLORIDE
     Dosage: 90 MILLIGRAM, QD
     Route: 065
  5. CHOLECALCIFEROL [Suspect]
     Active Substance: CHOLECALCIFEROL
     Indication: Hypophosphataemic osteomalacia
     Dosage: UNK
     Route: 065
  6. CHOLECALCIFEROL [Suspect]
     Active Substance: CHOLECALCIFEROL
     Dosage: 600 INTERNATIONAL UNIT, QD
     Route: 048
  7. SODIUM PHOSPHATE\SODIUM PHOSPHATE, MONOBASIC [Suspect]
     Active Substance: SODIUM PHOSPHATE\SODIUM PHOSPHATE, MONOBASIC
     Indication: Hypophosphataemic osteomalacia
     Dosage: 750 MILLIGRAM, QID
     Route: 048
  8. SODIUM PHOSPHATE\SODIUM PHOSPHATE, MONOBASIC [Suspect]
     Active Substance: SODIUM PHOSPHATE\SODIUM PHOSPHATE, MONOBASIC
     Dosage: 500 MILLIGRAM, QID
     Route: 065
  9. CALCITRIOL [Suspect]
     Active Substance: CALCITRIOL
     Indication: Hypophosphataemic osteomalacia
     Dosage: 0.5 MICROGRAM, QID
     Route: 065

REACTIONS (4)
  - Hyperparathyroidism secondary [Recovering/Resolving]
  - Hyperparathyroidism tertiary [Recovering/Resolving]
  - Drug ineffective [Unknown]
  - Off label use [Unknown]
